FAERS Safety Report 5487890-9 (Version None)
Quarter: 2007Q3

REPORT INFORMATION
  Report Type: 
  Country: None (occurrence: None)
  Receive Date: 20070925
  Receipt Date: 20070719
  Transmission Date: 20080115
  Serious: No
  Sender: FDA-Public Use
  Company Number: 2007US001510

PATIENT
  Sex: Female

DRUGS (10)
  1. VESICARE [Suspect]
     Indication: POLLAKIURIA
     Dosage: 5 MG, UID/QD
     Dates: start: 20061201
  2. GLUCOSAMINE (COD-LIVER OIL) [Concomitant]
  3. CELEBREX [Concomitant]
  4. PREMARIN [Concomitant]
  5. ASPIRIN [Concomitant]
  6. CENTRUM SILVER (ASCORBIC ACID, MINERALS NOS, VITAMIN B NOS, ZINC, CALC [Concomitant]
  7. VITAMIN D [Concomitant]
  8. VITAMIN B-12 [Concomitant]
  9. CELEXA [Concomitant]
  10. ACTONEL [Concomitant]

REACTIONS (4)
  - BALANCE DISORDER [None]
  - DRY MOUTH [None]
  - DYSPEPSIA [None]
  - INFLUENZA [None]
